FAERS Safety Report 12614045 (Version 5)
Quarter: 2017Q1

REPORT INFORMATION
  Report Type: Spontaneous
  Country: US (occurrence: US)
  Receive Date: 20160802
  Receipt Date: 20170131
  Transmission Date: 20170428
  Serious: No
  Sender: FDA-Public Use
  Company Number: US-PFIZER INC-2016368639

PATIENT
  Age: 67 Year
  Sex: Male
  Weight: 81.65 kg

DRUGS (16)
  1. ATORVASTATIN CALCIUM. [Concomitant]
     Active Substance: ATORVASTATIN CALCIUM
     Indication: BLOOD CHOLESTEROL ABNORMAL
     Dosage: 80 MG, 1X/DAY (ONE TABLET EVERY EVENING)
     Route: 048
  2. METFORMIN HCL [Concomitant]
     Active Substance: METFORMIN HYDROCHLORIDE
     Dosage: 1000 MG, TWICE A DAY [WITH FOOD]
     Route: 048
  3. TAMSULOSIN HCL [Concomitant]
     Active Substance: TAMSULOSIN
     Dosage: 0.4 MG, TWICE A DAY [30 MINUTES AFTER THE SAME MEAL EACH DAY]
     Route: 048
  4. ASPIRIN 81 [Concomitant]
     Active Substance: ASPIRIN
     Dosage: 81 MG, ONCE DAILY
     Route: 048
  5. LYRICA [Suspect]
     Active Substance: PREGABALIN
     Indication: FIBROMYALGIA
     Dosage: 100 MG, 3X/DAY
     Route: 048
  6. HYDROCODONE-ACETAMINOPHEN [Concomitant]
     Active Substance: ACETAMINOPHEN\HYDROCODONE
     Indication: PAIN
     Dosage: 1 DF, AS NEEDED [ONE TABLET EVERY 6 HOURS] [HYDROCODONE BITARTRATE-75] [PARACETAMOL-325 MG]
  7. LYRICA [Suspect]
     Active Substance: PREGABALIN
     Dosage: 100 MG, 1X/DAY
     Route: 048
     Dates: end: 20160723
  8. FINASTERIDE. [Concomitant]
     Active Substance: FINASTERIDE
     Indication: PROSTATIC DISORDER
     Dosage: 5 MG, (ONE TABLET) ONCE DAILY
     Route: 048
  9. IBUPROFEN. [Concomitant]
     Active Substance: IBUPROFEN
     Indication: PAIN
     Dosage: 800 MG, AS NEEDED [ONE TABLET THREE TIMES A DAY WITH FOOD]
     Route: 048
  10. OMEPRAZOLE. [Concomitant]
     Active Substance: OMEPRAZOLE
     Indication: DYSPHAGIA
  11. LYRICA [Suspect]
     Active Substance: PREGABALIN
     Indication: DIABETIC NEUROPATHY
     Dosage: 100 MG, 3X/DAY
     Route: 048
  12. AMITRIPTYLINE HCL [Concomitant]
     Active Substance: AMITRIPTYLINE
     Dosage: 25 MG, 1X/DAY (ONE TABLET AT BEDTIME)
     Route: 048
  13. IPRATROPIUM BR [Concomitant]
     Dosage: UNK, THREE TIMES A DAY [PLACE TWO SPRAYS IN NOSTRIL(S) AS DIRECTED]
     Route: 045
  14. OMEPRAZOLE. [Concomitant]
     Active Substance: OMEPRAZOLE
     Indication: GASTROOESOPHAGEAL REFLUX DISEASE
     Dosage: 20 MG, TWICE A DAY (ONE CAPSULE)
     Route: 048
  15. VENLAFAXINE HCL [Concomitant]
     Active Substance: VENLAFAXINE HYDROCHLORIDE
     Dosage: 75 MG, UNK
  16. CHONDROITIN/GLUCOSAMINE [Concomitant]
     Dosage: 1 DF (CAPSULE), TWICE A DAY
     Route: 048

REACTIONS (7)
  - Intentional product use issue [Unknown]
  - Withdrawal syndrome [Recovering/Resolving]
  - Condition aggravated [Recovering/Resolving]
  - Malaise [Recovering/Resolving]
  - Asthenia [Recovering/Resolving]
  - Fatigue [Recovering/Resolving]
  - Fibromyalgia [Recovering/Resolving]

NARRATIVE: CASE EVENT DATE: 20160725
